FAERS Safety Report 9854057 (Version 5)
Quarter: 2014Q1

REPORT INFORMATION
  Report Type: Spontaneous
  Country: LV (occurrence: LV)
  Receive Date: 20140129
  Receipt Date: 20140310
  Transmission Date: 20141002
  Serious: Yes (Hospitalization, Other)
  Sender: FDA-Public Use
  Company Number: LV-PFIZER INC-2014023960

PATIENT
  Age: 40 Year
  Sex: Male
  Weight: 175 kg

DRUGS (5)
  1. ENBREL MYCLIC [Suspect]
     Indication: RHEUMATOID ARTHRITIS
     Dosage: 50 MG, WEEKLY
     Route: 058
     Dates: start: 20130418, end: 20131220
  2. SULFASALAZINE [Suspect]
     Indication: RHEUMATOID ARTHRITIS
     Dosage: 500 MG, 2X/DAY
     Dates: start: 20131218
  3. METHOTREXAT [Suspect]
     Indication: RHEUMATOID ARTHRITIS
     Dosage: 15 MG, WEEKLY
     Route: 048
     Dates: start: 2013
  4. DICLOBERL [Suspect]
     Dosage: 100 MG, AS NEEDED
     Route: 048
  5. ACIDUM FOLICUM [Suspect]
     Dosage: 5 MG, WEEKLY
     Route: 048

REACTIONS (19)
  - Systemic lupus erythematosus [Recovering/Resolving]
  - Pyrexia [Recovering/Resolving]
  - Ascites [Recovered/Resolved]
  - Abdominal distension [Recovering/Resolving]
  - Polyserositis [Unknown]
  - Abdominal pain [Recovering/Resolving]
  - Leukopenia [Recovered/Resolved]
  - Lymphopenia [Recovering/Resolving]
  - Pleurisy [Recovering/Resolving]
  - Atypical pneumonia [Recovering/Resolving]
  - Pneumonia chlamydial [Recovering/Resolving]
  - Inflammatory marker increased [Recovering/Resolving]
  - DNA antibody positive [Recovering/Resolving]
  - Mitral valve incompetence [Unknown]
  - Tricuspid valve incompetence [Unknown]
  - Pulmonary valve incompetence [Unknown]
  - Interstitial lung disease [Unknown]
  - Splenomegaly [Unknown]
  - Drug effect incomplete [Recovering/Resolving]
